FAERS Safety Report 8095278-X (Version None)
Quarter: 2012Q1

REPORT INFORMATION
  Report Type: 
  Country: None (occurrence: None)
  Receive Date: 20120129
  Receipt Date: 20111219
  Transmission Date: 20120608
  Serious: No
  Sender: FDA-Public Use
  Company Number: US-ABBOTT-11P-163-0884799-00

PATIENT
  Age: 24 Year
  Sex: Female

DRUGS (9)
  1. YASMIN [Concomitant]
     Indication: CONTRACEPTION
     Dosage: PILL QD
  2. VITAMIN D [Concomitant]
     Indication: PRODUCT USED FOR UNKNOWN INDICATION
  3. HUMIRA [Suspect]
     Indication: ARTHRITIS ENTEROPATHIC
  4. XANAX [Concomitant]
     Indication: ANXIETY
  5. VIT C [Concomitant]
     Indication: PRODUCT USED FOR UNKNOWN INDICATION
  6. DILAUDID [Concomitant]
     Indication: PAIN
  7. HUMIRA [Suspect]
     Indication: CROHN'S DISEASE
     Dosage: LOADING DOSE
     Dates: start: 20111219
  8. ZOLOFT [Concomitant]
     Indication: DEPRESSION
  9. TOPAMAX [Concomitant]
     Indication: WEIGHT DECREASED

REACTIONS (3)
  - DEVICE MALFUNCTION [None]
  - INJECTION SITE HAEMORRHAGE [None]
  - INJECTION SITE PAIN [None]
